FAERS Safety Report 13698796 (Version 1)
Quarter: 2017Q2

REPORT INFORMATION
  Report Type: Spontaneous
  Country: US (occurrence: US)
  Receive Date: 20170627
  Receipt Date: 20170627
  Transmission Date: 20170830
  Serious: No
  Sender: FDA-Public Use
  Company Number: None

PATIENT
  Age: 27 Year
  Sex: Female
  Weight: 85.5 kg

DRUGS (11)
  1. PROBIOTICS [Concomitant]
     Active Substance: PROBIOTICS NOS
  2. WOMEN^S ONE-A-DAY [Concomitant]
  3. BIOTIN [Concomitant]
     Active Substance: BIOTIN
  4. DULOXETINE. [Suspect]
     Active Substance: DULOXETINE
     Indication: GENERALISED ANXIETY DISORDER
     Dosage: ?          OTHER STRENGTH:MG;QUANTITY:1 CAPSULE(S);?
     Route: 048
     Dates: start: 20150915
  5. N-ACETYLCYSTINE [Concomitant]
     Active Substance: ACETYLCYSTEINE
  6. VITAMIN B2 [Concomitant]
     Active Substance: RIBOFLAVIN
  7. INOSITOL [Concomitant]
     Active Substance: INOSITOL
  8. BUSPIRONE [Concomitant]
     Active Substance: BUSPIRONE HYDROCHLORIDE
  9. VITAMIN B6 [Concomitant]
     Active Substance: PYRIDOXINE HYDROCHLORIDE
  10. PRE [Concomitant]
  11. FISH OIL [Concomitant]
     Active Substance: FISH OIL

REACTIONS (10)
  - Withdrawal syndrome [None]
  - Nausea [None]
  - Paraesthesia [None]
  - Muscle twitching [None]
  - Cold sweat [None]
  - Myalgia [None]
  - Fatigue [None]
  - Vertigo [None]
  - Diarrhoea [None]
  - Hot flush [None]

NARRATIVE: CASE EVENT DATE: 20161205
